FAERS Safety Report 4624862-8 (Version None)
Quarter: 2005Q2

REPORT INFORMATION
  Report Type: 
  Country: None (occurrence: None)
  Receive Date: 20050325
  Receipt Date: 20050106
  Transmission Date: 20051028
  Serious: No
  Sender: FDA-Public Use
  Company Number: USA050187686

PATIENT
  Age: 81 Year
  Sex: Female

DRUGS (2)
  1. FORTEO [Suspect]
     Indication: OSTEOPOROSIS
     Dates: start: 20040101
  2. GLUCOSAMINE CHONDROITIN [Concomitant]

REACTIONS (4)
  - ERYTHEMA [None]
  - PRURITUS [None]
  - RASH [None]
  - VASCULAR INJURY [None]
